FAERS Safety Report 25934399 (Version 2)
Quarter: 2025Q4

REPORT INFORMATION
  Report Type: Spontaneous
  Country: CN (occurrence: CN)
  Receive Date: 20251017
  Receipt Date: 20251023
  Transmission Date: 20260119
  Serious: Yes (Other)
  Sender: GILEAD
  Company Number: CN-GILEAD-2025-0732242

PATIENT

DRUGS (1)
  1. BIKTARVY [Suspect]
     Active Substance: BICTEGRAVIR SODIUM\EMTRICITABINE\TENOFOVIR ALAFENAMIDE FUMARATE
     Indication: Prophylaxis against HIV infection
     Dosage: UNK
     Route: 065

REACTIONS (4)
  - Renal injury [Unknown]
  - Blood creatinine increased [Unknown]
  - Rash macular [Unknown]
  - Product use in unapproved indication [Unknown]
